FAERS Safety Report 16269444 (Version 2)
Quarter: 2019Q2

REPORT INFORMATION
  Report Type: Spontaneous
  Country: FR (occurrence: FR)
  Receive Date: 20190503
  Receipt Date: 20190521
  Transmission Date: 20190711
  Serious: Yes (Death, Hospitalization, Other)
  Sender: FDA-Public Use
  Company Number: FR-009507513-1905FRA000101

PATIENT
  Age: 63 Year
  Sex: Male

DRUGS (1)
  1. KEYTRUDA [Suspect]
     Active Substance: PEMBROLIZUMAB
     Indication: NON-SMALL CELL LUNG CANCER
     Dosage: FORMULATION: ONE INFUSION
     Dates: start: 20190412

REACTIONS (5)
  - Lung disorder [Fatal]
  - Cytomegalovirus infection [Unknown]
  - Infection [Unknown]
  - Respiratory failure [Unknown]
  - Coma [Unknown]

NARRATIVE: CASE EVENT DATE: 201904
